FAERS Safety Report 4416312-1 (Version None)
Quarter: 2004Q2

REPORT INFORMATION
  Report Type: 
  Country: None (occurrence: None)
  Receive Date: 20040628
  Receipt Date: 20040430
  Transmission Date: 20050107
  Serious: No
  Sender: FDA-Public Use
  Company Number: USA-2004-0014931

PATIENT
  Sex: Male

DRUGS (2)
  1. SPECTRACEF [Suspect]
     Indication: BACTERIAL INFECTION
     Dosage: 200MG, UNK; UNKNOWN
     Route: 065
  2. SPECTRACEF [Suspect]
     Indication: BRONCHITIS ACUTE
     Dosage: 200MG, UNK; UNKNOWN
     Route: 065

REACTIONS (1)
  - DRUG INEFFECTIVE [None]
